FAERS Safety Report 24184708 (Version 1)
Quarter: 2024Q3

REPORT INFORMATION
  Report Type: Spontaneous
  Country: IT (occurrence: IT)
  Receive Date: 20240807
  Receipt Date: 20240807
  Transmission Date: 20241016
  Serious: Yes (Hospitalization, Other)
  Sender: BAUSCH AND LOMB
  Company Number: IT-BAUSCH-BL-2024-011973

PATIENT
  Age: 3 Decade
  Sex: Female

DRUGS (4)
  1. BUDESONIDE [Suspect]
     Active Substance: BUDESONIDE
     Indication: Tumour necrosis factor receptor-associated periodic syndrome
     Route: 065
  2. MESALAMINE [Suspect]
     Active Substance: MESALAMINE
     Indication: Tumour necrosis factor receptor-associated periodic syndrome
     Route: 065
  3. CANAKINUMAB [Suspect]
     Active Substance: CANAKINUMAB
     Indication: Tumour necrosis factor receptor-associated periodic syndrome
     Dosage: MONTHLY
     Route: 065
  4. LINACLOTIDE [Suspect]
     Active Substance: LINACLOTIDE
     Indication: Tumour necrosis factor receptor-associated periodic syndrome
     Route: 065

REACTIONS (3)
  - Tachycardia [Unknown]
  - Angina pectoris [Unknown]
  - Product use in unapproved indication [Unknown]
